FAERS Safety Report 10780239 (Version 1)
Quarter: 2015Q1

REPORT INFORMATION
  Report Type: Spontaneous
  Country: US (occurrence: None)
  Receive Date: 20150206
  Receipt Date: 20150206
  Transmission Date: 20150721
  Serious: No
  Sender: FDA-Public Use
  Company Number: None

PATIENT
  Age: 59 Year
  Sex: Female

DRUGS (1)
  1. TECFIDERA [Suspect]
     Active Substance: DIMETHYL FUMARATE
     Indication: MULTIPLE SCLEROSIS
     Dosage: 240 MG BID PO
     Dates: start: 20140821

REACTIONS (4)
  - Amnesia [None]
  - Visual impairment [None]
  - Condition aggravated [None]
  - Balance disorder [None]

NARRATIVE: CASE EVENT DATE: 20140901
